FAERS Safety Report 14168092 (Version 5)
Quarter: 2017Q4

REPORT INFORMATION
  Report Type: Spontaneous
  Country: US (occurrence: US)
  Receive Date: 20171108
  Receipt Date: 20171201
  Transmission Date: 20180321
  Serious: Yes (Disabling)
  Sender: FDA-Public Use
  Company Number: US-LUPIN PHARMACEUTICALS INC.-2017-05869

PATIENT

DRUGS (5)
  1. XENAZINE [Interacting]
     Active Substance: TETRABENAZINE
     Dosage: 50 MG, UNK
     Route: 065
  2. XENAZINE [Interacting]
     Active Substance: TETRABENAZINE
     Indication: TARDIVE DYSKINESIA
     Dosage: 50 MG, UNK
     Route: 065
  3. CLOZAPINE. [Concomitant]
     Active Substance: CLOZAPINE
     Indication: PSYCHOTIC DISORDER
     Dosage: UNK
     Route: 065
  4. XENAZINE [Interacting]
     Active Substance: TETRABENAZINE
     Dosage: 12.5 MG, UNK
     Route: 065
  5. SERTRALINE HYDROCHLORIDE TABLETS [Suspect]
     Active Substance: SERTRALINE HYDROCHLORIDE
     Indication: DEPRESSION
     Dosage: 50 MG, QD
     Route: 048

REACTIONS (6)
  - Off label use [Not Recovered/Not Resolved]
  - Heart rate increased [Unknown]
  - Cognitive disorder [Not Recovered/Not Resolved]
  - Selective mutism [Unknown]
  - Drug interaction [Unknown]
  - Drug ineffective for unapproved indication [Not Recovered/Not Resolved]
